FAERS Safety Report 7290221-5 (Version None)
Quarter: 2011Q1

REPORT INFORMATION
  Report Type: 
  Country: None (occurrence: None)
  Receive Date: 20110214
  Receipt Date: 20110204
  Transmission Date: 20110831
  Serious: Yes (Other)
  Sender: FDA-Public Use
  Company Number: PHHY2011JP02030

PATIENT
  Age: 74 Year
  Sex: Male

DRUGS (7)
  1. KEITEN [Suspect]
     Dosage: 1 G, DAILY
     Route: 041
     Dates: start: 20100902, end: 20100920
  2. THYRADIN [Suspect]
     Dosage: 25 MG, DAILY
     Route: 048
     Dates: start: 20100902, end: 20100920
  3. FOSMICIN [Suspect]
     Dosage: 2 G, DAILY
     Route: 041
     Dates: start: 20100902, end: 20100920
  4. GASTER [Suspect]
     Dosage: 10 MG, DAILY
     Route: 041
     Dates: start: 20100902, end: 20100920
  5. PRIMPERAN TAB [Suspect]
     Dosage: 10 MG, DAILY
     Route: 041
     Dates: start: 20100902, end: 20100920
  6. CLINDAMYCIN [Suspect]
     Dosage: 1200 MG,DAILY
     Route: 041
     Dates: start: 20100902, end: 20100920
  7. VOLTAREN [Suspect]
     Indication: PYREXIA
     Dosage: 25 MG, DAILY
     Route: 048
     Dates: start: 20100903, end: 20100920

REACTIONS (4)
  - GAMMA-GLUTAMYLTRANSFERASE INCREASED [None]
  - ASPARTATE AMINOTRANSFERASE INCREASED [None]
  - ALANINE AMINOTRANSFERASE INCREASED [None]
  - LIVER DISORDER [None]
